FAERS Safety Report 5524151-3 (Version None)
Quarter: 2007Q4

REPORT INFORMATION
  Report Type: 
  Country: None (occurrence: None)
  Receive Date: 20071121
  Receipt Date: 20071112
  Transmission Date: 20080405
  Serious: Yes (Other)
  Sender: FDA-Public Use
  Company Number: US-PFIZER INC-2007095434

PATIENT
  Sex: Male
  Weight: 113.63 kg

DRUGS (8)
  1. VIAGRA [Suspect]
     Indication: ERECTILE DYSFUNCTION
     Dosage: TEXT:50MG
  2. PREDNISONE TAB [Suspect]
  3. LABETALOL HCL [Concomitant]
  4. CLONIDINE [Concomitant]
  5. ZESTRIL [Concomitant]
  6. NIFEDIPINE [Concomitant]
  7. MICARDIS [Concomitant]
  8. HYDROCHLOROTHIAZIDE [Concomitant]

REACTIONS (14)
  - BLOOD GLUCOSE INCREASED [None]
  - BLOOD PRESSURE ABNORMAL [None]
  - CEREBRAL HAEMORRHAGE [None]
  - CYANOPSIA [None]
  - DRUG INEFFECTIVE [None]
  - DRY MOUTH [None]
  - DYSGEUSIA [None]
  - DYSSTASIA [None]
  - HYPOAESTHESIA [None]
  - HYPOAESTHESIA FACIAL [None]
  - INTENTIONAL DRUG MISUSE [None]
  - NASAL CONGESTION [None]
  - PROSTATE CANCER [None]
  - PROSTATITIS [None]
